FAERS Safety Report 17255273 (Version 1)
Quarter: 2020Q1

REPORT INFORMATION
  Report Type: Spontaneous
  Country: US (occurrence: US)
  Receive Date: 20200110
  Receipt Date: 20200110
  Transmission Date: 20200409
  Serious: Yes (Other)
  Sender: FDA-Public Use
  Company Number: US-PRINSTON PHARMACEUTICAL INC.-2019PRN00593

PATIENT
  Sex: Female
  Weight: 54.42 kg

DRUGS (14)
  1. RISPERIDONE. [Suspect]
     Active Substance: RISPERIDONE
     Indication: AGGRESSION
     Dosage: 0.5 MG, 2X/DAY
     Route: 048
     Dates: start: 2018, end: 2018
  2. RISPERIDONE. [Suspect]
     Active Substance: RISPERIDONE
     Indication: ANXIETY
     Dosage: UNK
     Dates: start: 20190511
  3. GUANFACINE HCL ER [Concomitant]
     Active Substance: GUANFACINE HYDROCHLORIDE
     Indication: AGGRESSION
     Dosage: 2 MG, 1X/DAY
     Route: 048
  4. CHILDREN^S ALLEGRA ALLERGY [Concomitant]
     Active Substance: FEXOFENADINE HYDROCHLORIDE
  5. ASMANEX HFA [Concomitant]
     Active Substance: MOMETASONE FUROATE
     Dosage: 100 ?G, 2X/DAY
  6. MELATONIN [Concomitant]
     Active Substance: MELATONIN
     Indication: SLEEP DISORDER
     Dosage: 3 MG, 1X/DAY
     Route: 048
  7. RISPERIDONE (MYLAN) [Suspect]
     Active Substance: RISPERIDONE
     Indication: AUTISM SPECTRUM DISORDER
  8. RISPERIDONE. [Suspect]
     Active Substance: RISPERIDONE
     Indication: AUTISM SPECTRUM DISORDER
  9. GUANFACINE HCL ER [Concomitant]
     Active Substance: GUANFACINE HYDROCHLORIDE
     Indication: AGGRESSION
     Dosage: 1 MG, 1X/DAY
     Route: 048
  10. CVS CHILDREN^S GUMMY DINOS MULTIVITAMINS [Concomitant]
  11. CULTURELLE PROBIOTICS FOR KIDS [Concomitant]
  12. RISPERIDONE (MYLAN) [Suspect]
     Active Substance: RISPERIDONE
     Indication: ANXIETY
     Dosage: UNK
     Dates: start: 2018, end: 20190510
  13. RISPERIDONE (MYLAN) [Suspect]
     Active Substance: RISPERIDONE
     Indication: AGGRESSION
     Dosage: UNK
  14. METHYLPHENIDATE. [Concomitant]
     Active Substance: METHYLPHENIDATE
     Indication: ATTENTION DEFICIT/HYPERACTIVITY DISORDER
     Dosage: 18 MG, 1X/DAY
     Route: 048

REACTIONS (10)
  - Precocious puberty [Not Recovered/Not Resolved]
  - Drug ineffective [Not Recovered/Not Resolved]
  - Nervousness [Not Recovered/Not Resolved]
  - Tremor [Not Recovered/Not Resolved]
  - Aggression [Recovered/Resolved]
  - Withdrawal syndrome [Not Recovered/Not Resolved]
  - Product substitution issue [Not Recovered/Not Resolved]
  - Fear [Not Recovered/Not Resolved]
  - Anxiety [Not Recovered/Not Resolved]
  - Epiphyses premature fusion [Not Recovered/Not Resolved]

NARRATIVE: CASE EVENT DATE: 2018
